FAERS Safety Report 5521982-0 (Version None)
Quarter: 2007Q4

REPORT INFORMATION
  Report Type: 
  Country: None (occurrence: None)
  Receive Date: 20071120
  Receipt Date: 20070726
  Transmission Date: 20080405
  Serious: Yes (Hospitalization)
  Sender: FDA-Public Use
  Company Number: US-BRISTOL-MYERS SQUIBB COMPANY-13858485

PATIENT
  Age: 55 Year
  Sex: Male
  Weight: 91 kg

DRUGS (7)
  1. AVALIDE [Suspect]
     Indication: HYPERTENSION
     Route: 048
  2. AVALIDE [Suspect]
     Route: 048
  3. CLONIDINE [Concomitant]
     Route: 048
  4. PLAVIX [Concomitant]
     Route: 048
  5. ASPIRIN [Concomitant]
     Route: 048
  6. SIMVASTATIN [Concomitant]
     Route: 048
  7. NITROSTAT [Concomitant]

REACTIONS (2)
  - CHEST PAIN [None]
  - GOUT [None]
